FAERS Safety Report 6060954-7 (Version None)
Quarter: 2009Q1

REPORT INFORMATION
  Report Type: 
  Country: None (occurrence: None)
  Receive Date: 20090202
  Receipt Date: 20090121
  Transmission Date: 20090719
  Serious: Yes (Other)
  Sender: FDA-Public Use
  Company Number: US-ROCHE-603712

PATIENT
  Sex: Female
  Weight: 113 kg

DRUGS (8)
  1. PEGASYS [Suspect]
     Indication: HEPATITIS C
     Route: 058
     Dates: start: 20070601
  2. PEGASYS [Suspect]
     Dosage: DOSE DECREASED IN WEEK 12
     Route: 058
     Dates: start: 20070901, end: 20080601
  3. RIBAVIRIN [Suspect]
     Indication: HEPATITIS C
     Route: 048
     Dates: start: 20070601, end: 20080601
  4. PROGRAF [Concomitant]
     Indication: LIVER TRANSPLANT
     Dosage: INDICATION: LIVER TRANSPLANT-ANTI REJECTION
     Route: 048
     Dates: start: 20060329
  5. BACTRIM [Concomitant]
     Indication: PROPHYLAXIS
     Dosage: STRENGTH: DS
     Route: 048
     Dates: start: 20060329
  6. URSO 250 [Concomitant]
     Indication: BILE DUCT OBSTRUCTION
     Route: 048
     Dates: end: 20060329
  7. ASPIRIN [Concomitant]
     Route: 048
  8. PROTEINEX [Concomitant]

REACTIONS (3)
  - NEPHROTIC SYNDROME [None]
  - NEUTROPENIA [None]
  - THROMBOCYTOPENIA [None]
